FAERS Safety Report 9844072 (Version 1)
Quarter: 2014Q1

REPORT INFORMATION
  Report Type: Report from Study
  Country: FR (occurrence: FR)
  Receive Date: 20140127
  Receipt Date: 20140127
  Transmission Date: 20141002
  Serious: Yes (Hospitalization)
  Sender: FDA-Public Use
  Company Number: FR-ROCHE-1334886

PATIENT
  Age: 48 Year
  Sex: Male

DRUGS (17)
  1. RITUXIMAB [Suspect]
     Indication: ANTI-NEUTROPHIL CYTOPLASMIC ANTIBODY POSITIVE VASCULITIS
     Dosage: 4 CYCLES
     Route: 065
     Dates: start: 201209
  2. RITUXIMAB [Suspect]
     Dosage: DATE OF LAST DOSE PRIOR TO SAE: 13/MAY/2013
     Route: 065
     Dates: start: 20130424
  3. PREDNISONE [Suspect]
     Indication: GRANULOMATOSIS WITH POLYANGIITIS
     Route: 048
     Dates: start: 20100820
  4. PREDNISONE [Suspect]
     Indication: ANTI-NEUTROPHIL CYTOPLASMIC ANTIBODY POSITIVE VASCULITIS
  5. BACTRIM FORTE [Concomitant]
     Route: 065
  6. DIFFU K [Concomitant]
     Route: 065
  7. LEDERFOLINE [Concomitant]
     Route: 065
  8. INEXIUM [Concomitant]
     Route: 065
  9. CACIT D3 [Concomitant]
     Dosage: 1 SACHET
     Route: 065
  10. UVEDOSE [Concomitant]
     Dosage: 1 AMPOULE
     Route: 065
  11. IXEL [Concomitant]
  12. MUCOMYST [Concomitant]
     Route: 065
  13. IMOVANE [Concomitant]
     Route: 065
  14. TEMESTA (FRANCE) [Concomitant]
  15. ENDOXAN [Concomitant]
     Dosage: 9 CYCLES
     Route: 065
  16. METHOTREXATE [Concomitant]
     Indication: GRANULOMATOSIS WITH POLYANGIITIS
     Dosage: 9 CYCLES
     Route: 065
  17. METHOTREXATE [Concomitant]
     Dosage: 6 CYCLES
     Route: 065
     Dates: start: 201202, end: 201206

REACTIONS (1)
  - Abnormal behaviour [Unknown]
